FAERS Safety Report 10229979 (Version 1)
Quarter: 2014Q2

REPORT INFORMATION
  Report Type: Spontaneous
  Country: US (occurrence: None)
  Receive Date: 20140610
  Receipt Date: 20140610
  Transmission Date: 20141212
  Serious: Yes (Hospitalization)
  Sender: FDA-Public Use
  Company Number: None

PATIENT
  Age: 64 Year
  Sex: Female
  Weight: 54.5 kg

DRUGS (2)
  1. HEPARIN [Suspect]
     Indication: PULMONARY EMBOLISM
     Dosage: 650 UNITS PER HOUR IV
     Route: 042
     Dates: start: 20140601, end: 20140603
  2. ENOXAPARIN [Concomitant]
     Dosage: 60 MG BID SQ
     Route: 058
     Dates: start: 20140519, end: 20140531

REACTIONS (4)
  - Thrombocytopenia [None]
  - Leukocytosis [None]
  - Sepsis [None]
  - Blood fibrinogen increased [None]
